FAERS Safety Report 5671293-8 (Version None)
Quarter: 2008Q1

REPORT INFORMATION
  Report Type: 
  Country: None (occurrence: None)
  Receive Date: 20080318
  Receipt Date: 20080307
  Transmission Date: 20080703
  Serious: Yes (Hospitalization, Other)
  Sender: FDA-Public Use
  Company Number: JP-PFIZER INC-2007106358

PATIENT
  Sex: Male

DRUGS (12)
  1. LIPITOR [Suspect]
     Indication: HYPERLIPIDAEMIA
     Route: 048
     Dates: start: 20070921, end: 20071104
  2. AMARYL [Concomitant]
     Indication: DIABETES MELLITUS
     Dosage: DAILY DOSE:6MG
     Route: 048
     Dates: start: 20071002, end: 20071008
  3. AMARYL [Concomitant]
     Dosage: DAILY DOSE:2MG
     Route: 048
     Dates: start: 20071009, end: 20071011
  4. ALDACTONE [Concomitant]
     Indication: ACUTE MYOCARDIAL INFARCTION
     Dosage: DAILY DOSE:25MG
     Route: 048
     Dates: start: 20070921
  5. BROTIZOLAM [Concomitant]
     Indication: INSOMNIA
     Dosage: DAILY DOSE:.25MG
     Route: 048
  6. MEDICON [Concomitant]
     Indication: NASOPHARYNGITIS
     Dosage: DAILY DOSE:45MG
     Route: 048
     Dates: start: 20071101, end: 20071105
  7. ASPIRIN [Concomitant]
     Indication: ACUTE MYOCARDIAL INFARCTION
     Dosage: DAILY DOSE:100MG
     Route: 048
     Dates: start: 20070921
  8. FAMOTIDINE [Concomitant]
     Indication: GASTRIC ULCER
     Dosage: DAILY DOSE:20MG
     Route: 048
     Dates: start: 20070920
  9. CALBLOCK [Concomitant]
     Indication: HYPERTENSION
     Dosage: DAILY DOSE:8MG
     Route: 048
     Dates: start: 20071002
  10. VALSARTAN [Concomitant]
     Indication: ACUTE MYOCARDIAL INFARCTION
     Dosage: DAILY DOSE:80MG
     Route: 050
     Dates: start: 20070921
  11. PANALDINE [Concomitant]
     Indication: ACUTE MYOCARDIAL INFARCTION
     Dosage: DAILY DOSE:200MG
     Route: 048
     Dates: start: 20070920
  12. PL [Concomitant]
     Indication: NASOPHARYNGITIS
     Dosage: DAILY DOSE:3GRAM
     Route: 048
     Dates: start: 20071101, end: 20071105

REACTIONS (2)
  - LIVER DISORDER [None]
  - RHABDOMYOLYSIS [None]
